FAERS Safety Report 18106446 (Version 1)
Quarter: 2020Q3

REPORT INFORMATION
  Report Type: Spontaneous
  Country: US (occurrence: US)
  Receive Date: 20200803
  Receipt Date: 20200803
  Transmission Date: 20201103
  Serious: No
  Sender: FDA-Public Use
  Company Number: None

PATIENT
  Age: 23 Year
  Sex: Female
  Weight: 78.75 kg

DRUGS (1)
  1. NUVARING [Suspect]
     Active Substance: ETHINYL ESTRADIOL\ETONOGESTREL
     Dates: start: 20200728, end: 20200802

REACTIONS (7)
  - Headache [None]
  - Dyspnoea [None]
  - Furuncle [None]
  - Vaginal discharge [None]
  - Vulvovaginal pruritus [None]
  - Vulvovaginal discomfort [None]
  - Chest pain [None]

NARRATIVE: CASE EVENT DATE: 20200802
